FAERS Safety Report 4612745-9 (Version None)
Quarter: 2005Q1

REPORT INFORMATION
  Report Type: 
  Country: None (occurrence: None)
  Receive Date: 20050318
  Receipt Date: 20050307
  Transmission Date: 20050727
  Serious: Yes (Hospitalization, Other)
  Sender: FDA-Public Use
  Company Number: US-MERCK-0503USA00966

PATIENT
  Age: 70 Year
  Sex: Female

DRUGS (3)
  1. FOSAMAX [Suspect]
     Route: 048
  2. OS-CAL [Concomitant]
     Route: 065
  3. CELEBREX [Suspect]
     Route: 065
     Dates: end: 20040101

REACTIONS (2)
  - GASTROINTESTINAL ULCER HAEMORRHAGE [None]
  - HEART RATE DECREASED [None]
